FAERS Safety Report 20680625 (Version 1)
Quarter: 2022Q2

REPORT INFORMATION
  Report Type: Spontaneous
  Country: CA (occurrence: CA)
  Receive Date: 20220406
  Receipt Date: 20220406
  Transmission Date: 20220720
  Serious: Yes (Life-Threatening)
  Sender: FDA-Public Use
  Company Number: CA-TEVA-2022-CA-2023257

PATIENT
  Age: 76 Year
  Sex: Female

DRUGS (18)
  1. CEFADROXIL [Suspect]
     Active Substance: CEFADROXIL
     Indication: Osteomyelitis chronic
     Dosage: 1000 MILLIGRAM DAILY;
     Route: 048
  2. ALLOPURINOL [Concomitant]
     Active Substance: ALLOPURINOL
  3. BETADERM [Concomitant]
     Active Substance: BETAMETHASONE VALERATE
  4. BISOPROLOL [Concomitant]
     Active Substance: BISOPROLOL
     Route: 065
  5. COLCHICINE [Concomitant]
     Active Substance: COLCHICINE
  6. CRESTOR [Concomitant]
     Active Substance: ROSUVASTATIN CALCIUM
  7. HYDROCORTISONE [Concomitant]
     Active Substance: HYDROCORTISONE
  8. FERROUS GLUCONATE [Concomitant]
     Active Substance: FERROUS GLUCONATE
  9. FUROSEMIDE [Concomitant]
     Active Substance: FUROSEMIDE
     Route: 065
  10. JANUVIA [Concomitant]
     Active Substance: SITAGLIPTIN PHOSPHATE
     Route: 048
  11. KEPPRA [Concomitant]
     Active Substance: LEVETIRACETAM
  12. NITROGLYCERIN [Concomitant]
     Active Substance: NITROGLYCERIN
  13. NITROGLYCERIN [Concomitant]
     Active Substance: NITROGLYCERIN
  14. NOVORAPID [Concomitant]
     Active Substance: INSULIN ASPART
  15. PLAVIX [Concomitant]
     Active Substance: CLOPIDOGREL BISULFATE
  16. SYNTHROID [Concomitant]
     Active Substance: LEVOTHYROXINE SODIUM
  17. TRESIBA [Concomitant]
     Active Substance: INSULIN DEGLUDEC
  18. ZOPICLONE [Concomitant]
     Active Substance: ZOPICLONE

REACTIONS (1)
  - Agranulocytosis [Recovered/Resolved]
